FAERS Safety Report 8920520 (Version 15)
Quarter: 2016Q4

REPORT INFORMATION
  Report Type: Report from Study
  Country: CA (occurrence: CA)
  Receive Date: 20121121
  Receipt Date: 20161226
  Transmission Date: 20170207
  Serious: Yes (Life-Threatening, Hospitalization, Other)
  Sender: FDA-Public Use
  Company Number: CA-ROCHE-1155061

PATIENT
  Age: 72 Year
  Sex: Female
  Weight: 46 kg

DRUGS (14)
  1. TECTA [Concomitant]
     Active Substance: PANTOPRAZOLE MAGNESIUM
  2. RITUXAN [Suspect]
     Active Substance: RITUXIMAB
     Route: 042
     Dates: start: 20151110
  3. PREDNISONE. [Concomitant]
     Active Substance: PREDNISONE
  4. ACETAMINOPHEN. [Concomitant]
     Active Substance: ACETAMINOPHEN
     Indication: PREMEDICATION
     Route: 048
     Dates: start: 20100824
  5. TYLENOL [Concomitant]
     Active Substance: ACETAMINOPHEN
     Indication: ARTHRITIS
     Route: 065
  6. NACL .9% [Concomitant]
  7. PROLIA [Concomitant]
     Active Substance: DENOSUMAB
  8. ACLASTA [Concomitant]
     Active Substance: ZOLEDRONIC ACID
  9. OMEGA 3 [Concomitant]
     Active Substance: OMEGA-3 FATTY ACIDS
  10. RITUXAN [Suspect]
     Active Substance: RITUXIMAB
     Indication: RHEUMATOID ARTHRITIS
     Dosage: LAST INFUSION: 21/MAR/2014
     Route: 042
     Dates: start: 20090330
  11. DIPHENHYDRAMINE HCL [Concomitant]
     Active Substance: DIPHENHYDRAMINE HYDROCHLORIDE
     Indication: PREMEDICATION
     Route: 048
     Dates: start: 20100824
  12. RITUXAN [Suspect]
     Active Substance: RITUXIMAB
     Dosage: RECIVED ON 02/APR/2013, MOST RECENT DOSE: 11/FEB/2015
     Route: 042
     Dates: start: 20100824
  13. VITAMIN C [Concomitant]
     Active Substance: ASCORBIC ACID
  14. METHYLPREDNISOLONE. [Concomitant]
     Active Substance: METHYLPREDNISOLONE
     Indication: PREMEDICATION
     Route: 042
     Dates: start: 20100824

REACTIONS (21)
  - Pleural effusion [Unknown]
  - Blood pressure systolic abnormal [Unknown]
  - Atrial fibrillation [Recovering/Resolving]
  - Ventricular extrasystoles [Unknown]
  - Hip arthroplasty [Recovered/Resolved]
  - Infusion related reaction [Unknown]
  - Decreased appetite [Unknown]
  - Joint swelling [Unknown]
  - Blood pressure fluctuation [Unknown]
  - Atrial flutter [Not Recovered/Not Resolved]
  - Rheumatoid arthritis [Unknown]
  - Blood pressure increased [Unknown]
  - Blood pressure systolic decreased [Unknown]
  - Atrial fibrillation [Unknown]
  - Atrial fibrillation [Unknown]
  - Heart rate increased [Not Recovered/Not Resolved]
  - Labile blood pressure [Unknown]
  - Weight decreased [Unknown]
  - Cardiac failure congestive [Unknown]
  - Crepitations [Unknown]
  - Blood pressure diastolic abnormal [Unknown]

NARRATIVE: CASE EVENT DATE: 201204
